FAERS Safety Report 9202017 (Version 1)
Quarter: 2013Q1

REPORT INFORMATION
  Report Type: Spontaneous
  Country: IT (occurrence: None)
  Receive Date: 20130327
  Receipt Date: 20130327
  Transmission Date: 20140127
  Serious: Yes (Other)
  Sender: FDA-Public Use
  Company Number: FK201300942

PATIENT
  Age: 79 Year
  Sex: Male

DRUGS (3)
  1. IRINOTECAN (IRINOTECAN) [Suspect]
     Indication: COLORECTAL CANCER METASTATIC
     Route: 042
     Dates: start: 20121014, end: 20121114
  2. FLUOROURACIL (FLUOROURACIL) [Suspect]
     Indication: COLON CANCER METASTATIC
     Dosage: CYCLICAL
     Dates: start: 20121014, end: 20121114
  3. ERBITUX (CETUXIMAB) [Concomitant]

REACTIONS (1)
  - Hepatic failure [None]
